FAERS Safety Report 23189032 (Version 1)
Quarter: 2023Q4

REPORT INFORMATION
  Report Type: Spontaneous
  Country: US (occurrence: US)
  Receive Date: 20231115
  Receipt Date: 20231115
  Transmission Date: 20240110
  Serious: No
  Sender: FDA-Public Use
  Company Number: US-GLK-002278

PATIENT
  Sex: Male

DRUGS (2)
  1. PHOTREXA [Suspect]
     Active Substance: RIBOFLAVIN 5^-PHOSPHATE SODIUM
     Indication: Product used for unknown indication
     Dosage: RIGHT EYE
     Route: 047
     Dates: start: 20231011, end: 20231011
  2. PHOTREXA VISCOUS [Suspect]
     Active Substance: RIBOFLAVIN 5^-PHOSPHATE SODIUM
     Indication: Product used for unknown indication
     Dosage: RIGHT EYE
     Route: 047
     Dates: start: 20231011, end: 20231011

REACTIONS (3)
  - Device issue [Not Recovered/Not Resolved]
  - Therapy cessation [Unknown]
  - No adverse event [Unknown]

NARRATIVE: CASE EVENT DATE: 20231011
